FAERS Safety Report 7162516-7 (Version None)
Quarter: 2010Q4

REPORT INFORMATION
  Report Type: 
  Country: None (occurrence: None)
  Receive Date: 20101215
  Receipt Date: 20101213
  Transmission Date: 20110411
  Serious: Yes (Hospitalization)
  Sender: FDA-Public Use
  Company Number: IR-ROCHE-748128

PATIENT
  Age: 40 Year
  Sex: Female

DRUGS (1)
  1. PEGASYS [Suspect]
     Route: 042

REACTIONS (1)
  - VASCULITIS [None]
